FAERS Safety Report 9103696 (Version 1)
Quarter: 2013Q1

REPORT INFORMATION
  Report Type: Spontaneous
  Country: CN (occurrence: CN)
  Receive Date: 20130219
  Receipt Date: 20130219
  Transmission Date: 20140127
  Serious: Yes (Other)
  Sender: FDA-Public Use
  Company Number: CN-JNJFOC-20130205774

PATIENT
  Sex: Female

DRUGS (1)
  1. INFLIXIMAB, RECOMBINANT [Suspect]
     Indication: ARTHRITIS
     Dosage: 0, 2. 6 WEEKS.??STRENGTH 100 MG PER VIAL
     Route: 042

REACTIONS (5)
  - Dyspnoea [Recovered/Resolved]
  - Laryngeal oedema [Unknown]
  - Oxygen saturation decreased [Recovering/Resolving]
  - Infusion related reaction [Unknown]
  - Rash [Recovered/Resolved]
